FAERS Safety Report 8765966 (Version 2)
Quarter: 2012Q4

REPORT INFORMATION
  Report Type: Report from Study
  Country: JP (occurrence: JP)
  Receive Date: 20120904
  Receipt Date: 20121029
  Transmission Date: 20130627
  Serious: Yes (Other)
  Sender: FDA-Public Use
  Company Number: JP-009507513-1208JPN009665

PATIENT
  Age: 55 Year
  Sex: Female
  Weight: 52 kg

DRUGS (6)
  1. PEGINTRON [Suspect]
     Indication: HEPATITIS C
     Dosage: 1.5 Microgram per kilogram, qw
     Route: 058
     Dates: start: 20120802
  2. REBETOL [Suspect]
     Indication: HEPATITIS C
     Dosage: 600 mg, qd
     Route: 048
     Dates: start: 20120802, end: 20120821
  3. REBETOL [Suspect]
     Dosage: 400 mg, qd
     Route: 048
     Dates: start: 20120822
  4. TELAVIC [Suspect]
     Indication: HEPATITIS C
     Dosage: 2250 mg, qd
     Route: 048
     Dates: start: 20120802, end: 20120806
  5. LOXONIN [Concomitant]
     Dosage: 60 mg, prn
     Route: 048
     Dates: start: 20120802
  6. MUCOSTA [Concomitant]
     Dosage: 100 mg, qd
     Route: 048
     Dates: start: 20120803

REACTIONS (1)
  - Erythema [Recovered/Resolved]
